FAERS Safety Report 18898102 (Version 2)
Quarter: 2021Q2

REPORT INFORMATION
  Report Type: Report from Study
  Country: US (occurrence: US)
  Receive Date: 20210216
  Receipt Date: 20210408
  Transmission Date: 20210717
  Serious: No
  Sender: FDA-Public Use
  Company Number: NVSC2021US035421

PATIENT
  Sex: Female

DRUGS (2)
  1. KISQALI [Suspect]
     Active Substance: RIBOCICLIB
     Route: 048
  2. KISQALI [Suspect]
     Active Substance: RIBOCICLIB
     Indication: PRODUCT USED FOR UNKNOWN INDICATION
     Dosage: UNK
     Route: 048

REACTIONS (7)
  - Product distribution issue [Unknown]
  - Erythema [Unknown]
  - Pruritus [Unknown]
  - Nausea [Recovered/Resolved]
  - Skin exfoliation [Unknown]
  - Weight decreased [Unknown]
  - Inappropriate schedule of product administration [Unknown]
